FAERS Safety Report 8866204 (Version 2)
Quarter: 2012Q4

REPORT INFORMATION
  Report Type: 
  Country: ES (occurrence: ES)
  Receive Date: 20121025
  Receipt Date: 20121101
  Transmission Date: 20130627
  Serious: Yes (Hospitalization)
  Sender: FDA-Public Use
  Company Number: ES-009507513-1210ESP010617

PATIENT
  Age: 39 Year
  Sex: Female

DRUGS (4)
  1. SYCREST [Suspect]
     Indication: BIPOLAR DISORDER
     Dosage: 50 mg, qd
     Route: 060
     Dates: start: 20121017
  2. SYCREST [Suspect]
     Dosage: 10 mg, qd
     Route: 060
  3. LAMOTRIGINE [Concomitant]
     Dosage: 100 mg, bid
  4. ESCITALOPRAM [Concomitant]
     Dosage: 10 mg, qd

REACTIONS (3)
  - Suicide attempt [Recovered/Resolved]
  - Intentional overdose [Recovered/Resolved]
  - Somnolence [Recovered/Resolved]
